FAERS Safety Report 9713357 (Version 2)
Quarter: 2014Q2

REPORT INFORMATION
  Report Type: Spontaneous
  Country: IT (occurrence: IT)
  Receive Date: 20131126
  Receipt Date: 20140609
  Transmission Date: 20141212
  Serious: Yes (Other)
  Sender: FDA-Public Use
  Company Number: IT-MYLANLABS-2013S1025766

PATIENT
  Age: 77 Year
  Sex: Female
  Weight: 68 kg

DRUGS (4)
  1. RABEPRAZOLE [Suspect]
     Indication: ABDOMINAL PAIN UPPER
     Route: 048
     Dates: start: 20131011, end: 20131106
  2. MOTILEX /00034001/ [Interacting]
     Indication: ABDOMINAL PAIN UPPER
     Route: 048
     Dates: start: 20131012, end: 20131015
  3. CARDIOASPIRIN [Concomitant]
     Indication: PRODUCT USED FOR UNKNOWN INDICATION
     Dates: start: 20030101, end: 20131031
  4. EUTIROX [Concomitant]
     Indication: PRODUCT USED FOR UNKNOWN INDICATION
     Dates: start: 20080501, end: 20131106

REACTIONS (3)
  - Accommodation disorder [Recovered/Resolved]
  - Headache [Recovered/Resolved]
  - Drug interaction [Recovered/Resolved]
